FAERS Safety Report 9468433 (Version 1)
Quarter: 2013Q3

REPORT INFORMATION
  Report Type: Spontaneous
  Country: FR (occurrence: FR)
  Receive Date: 20130821
  Receipt Date: 20130821
  Transmission Date: 20140515
  Serious: Yes (Hospitalization)
  Sender: FDA-Public Use
  Company Number: FR-PFIZER INC-2013236202

PATIENT
  Sex: Male

DRUGS (5)
  1. XANAX [Suspect]
  2. NEO-CODION [Suspect]
     Dosage: UNK
     Route: 048
     Dates: start: 20121126, end: 20121128
  3. DEPAKOTE [Concomitant]
     Indication: BIPOLAR DISORDER
  4. NOZINAN [Concomitant]
     Indication: BIPOLAR DISORDER
  5. CLOPIXOL [Concomitant]
     Indication: BIPOLAR DISORDER

REACTIONS (6)
  - Drug abuse [Recovering/Resolving]
  - Dependence [Recovering/Resolving]
  - Attention deficit/hyperactivity disorder [Unknown]
  - Agitation [Unknown]
  - Insomnia [Recovering/Resolving]
  - Fatigue [Unknown]
